FAERS Safety Report 9232161 (Version 2)
Quarter: 2013Q2

REPORT INFORMATION
  Report Type: Spontaneous
  Country: US (occurrence: US)
  Receive Date: 20130415
  Receipt Date: 20130618
  Transmission Date: 20140414
  Serious: Yes (Hospitalization, Disabling, Other)
  Sender: FDA-Public Use
  Company Number: US-PFIZER INC-2013113871

PATIENT
  Age: 30 Year
  Sex: Male
  Weight: 102 kg

DRUGS (1)
  1. ZITHROMAX [Suspect]
     Indication: EAR INFECTION
     Dosage: 2 STAT, THEN 1 DAILY
     Route: 048
     Dates: start: 199610, end: 199610

REACTIONS (11)
  - Cardiac failure congestive [Not Recovered/Not Resolved]
  - Arrhythmia [Unknown]
  - Cardiac failure [Unknown]
  - Cardiomegaly [Unknown]
  - Cerebrovascular accident [Recovering/Resolving]
  - Hemiparesis [Recovered/Resolved with Sequelae]
  - Diabetes mellitus [Unknown]
  - Amnesia [Recovering/Resolving]
  - Mood altered [Recovering/Resolving]
  - Neck deformity [Unknown]
  - Blood pressure abnormal [Unknown]
